FAERS Safety Report 17928651 (Version 1)
Quarter: 2020Q2

REPORT INFORMATION
  Report Type: Spontaneous
  Country: US (occurrence: US)
  Receive Date: 20200622
  Receipt Date: 20200622
  Transmission Date: 20200714
  Serious: No
  Sender: FDA-Public Use
  Company Number: None

PATIENT
  Age: 64 Year
  Sex: Female
  Weight: 67.5 kg

DRUGS (3)
  1. BOTOX [Suspect]
     Active Substance: ONABOTULINUMTOXINA
     Dates: start: 20200609
  2. TRAMADOL. [Concomitant]
     Active Substance: TRAMADOL
  3. MIGRANAL [Concomitant]
     Active Substance: DIHYDROERGOTAMINE MESYLATE

REACTIONS (2)
  - Migraine [None]
  - Eyelid ptosis [None]

NARRATIVE: CASE EVENT DATE: 20200609
